FAERS Safety Report 8188496-3 (Version None)
Quarter: 2012Q1

REPORT INFORMATION
  Report Type: 
  Country: None (occurrence: None)
  Receive Date: 20120306
  Receipt Date: 20120301
  Transmission Date: 20120608
  Serious: Yes (Disabling)
  Sender: FDA-Public Use
  Company Number: PHEH2012US003374

PATIENT
  Sex: Male
  Weight: 149 kg

DRUGS (2)
  1. FAMPRIDINE [Concomitant]
     Indication: GAIT DISTURBANCE
     Dosage: UNK UKN, UNK
     Route: 048
     Dates: start: 20120117
  2. GILENYA [Suspect]
     Indication: RELAPSING-REMITTING MULTIPLE SCLEROSIS
     Dosage: 0.5 MG, QD
     Route: 048
     Dates: start: 20110507

REACTIONS (8)
  - NAUSEA [None]
  - GAIT DISTURBANCE [None]
  - DYSARTHRIA [None]
  - HEADACHE [None]
  - COGNITIVE DISORDER [None]
  - FATIGUE [None]
  - NEURALGIA [None]
  - LYMPHOCYTE COUNT DECREASED [None]
